FAERS Safety Report 7587944-7 (Version None)
Quarter: 2011Q3

REPORT INFORMATION
  Report Type: 
  Country: None (occurrence: None)
  Receive Date: 20110705
  Receipt Date: 20110628
  Transmission Date: 20111222
  Serious: Yes (Other)
  Sender: FDA-Public Use
  Company Number: US-PFIZER INC-2011016822

PATIENT
  Sex: Male
  Weight: 84 kg

DRUGS (13)
  1. CHANTIX [Suspect]
     Dosage: 1 MG, 2X/DAY
     Route: 048
     Dates: start: 20110101, end: 20110120
  2. PROMETHAZINE [Concomitant]
     Indication: NAUSEA
     Dosage: UNK
  3. METOPROLOL [Concomitant]
     Indication: BLOOD PRESSURE
     Dosage: UNK
  4. NEURONTIN [Concomitant]
     Dosage: 600 MG X 2 =1200MG, AT BEDTIME
  5. CHANTIX [Suspect]
     Indication: SMOKING CESSATION THERAPY
     Dosage: 0.5MG DAILY
     Dates: start: 20110103, end: 20110101
  6. LISINOPRIL [Concomitant]
     Indication: HYPERTENSION
     Dosage: 20 MG, 2X/DAY
  7. ALBUTEROL [Concomitant]
     Indication: ASTHMA
     Dosage: UNK
  8. PROTONIX [Concomitant]
     Indication: NEURALGIA
     Dosage: 40 MG, 1X/DAY
  9. NEURONTIN [Concomitant]
     Indication: BACK PAIN
     Dosage: 600MG ONE IN THE MORNING AND AFTERNOON
     Dates: start: 20090101
  10. OMEPRAZOLE [Concomitant]
     Indication: ULCER
     Dosage: 20MG BEFORE MEAL
  11. METHOCARBAMOL [Concomitant]
     Indication: MUSCLE RELAXANT THERAPY
     Dosage: UNK
  12. PROMETHAZINE [Concomitant]
     Indication: COUGH
  13. FLOVENT [Concomitant]
     Indication: ASTHMA
     Dosage: UNK

REACTIONS (3)
  - RASH [None]
  - URTICARIA [None]
  - SWELLING FACE [None]
